FAERS Safety Report 13282203 (Version 1)
Quarter: 2017Q1

REPORT INFORMATION
  Report Type: Report from Study
  Country: US (occurrence: US)
  Receive Date: 20170301
  Receipt Date: 20170301
  Transmission Date: 20170428
  Serious: Yes (Other)
  Sender: FDA-Public Use
  Company Number: US-GLAXOSMITHKLINE-US2017GSK028366

PATIENT
  Sex: Male

DRUGS (2)
  1. FORMOTEROL + MOMETASONA [Suspect]
     Active Substance: FORMOTEROL\MOMETASONE
     Indication: ASTHMA
     Dosage: 400 MCG/DAY
     Route: 055
  2. FLUTICASONE PROPIONATE. [Suspect]
     Active Substance: FLUTICASONE PROPIONATE
     Indication: ASTHMA
     Dosage: 440 MCG/DAY
     Route: 055

REACTIONS (2)
  - Adrenal suppression [Unknown]
  - Growth retardation [Unknown]
